FAERS Safety Report 14778652 (Version 10)
Quarter: 2018Q3

REPORT INFORMATION
  Report Type: Spontaneous
  Country: CA (occurrence: CA)
  Receive Date: 20180419
  Receipt Date: 20180925
  Transmission Date: 20181010
  Serious: Yes (Hospitalization, Disabling, Other)
  Sender: FDA-Public Use
  Company Number: CA-CELLTRION INC.-2018CA019277

PATIENT

DRUGS (9)
  1. INFLECTRA [Suspect]
     Active Substance: INFLIXIMAB-DYYB
     Dosage: 374 MG, CYCLIC, EVERY 0,2 6 WEEKS, THEN EVERY 8 WEEKS
     Route: 042
     Dates: start: 20180215
  2. INFLECTRA [Suspect]
     Active Substance: INFLIXIMAB-DYYB
     Dosage: 400 MG, , EVERY 4 WEEKS
     Route: 065
     Dates: start: 20180802
  3. PREDNISONE. [Concomitant]
     Active Substance: PREDNISONE
     Dosage: UNK
  4. INFLECTRA [Suspect]
     Active Substance: INFLIXIMAB-DYYB
     Dosage: 374 MG, CYCLIC, EVERY 0,2 6 WEEKS, THEN EVERY 8 WEEKS
     Route: 042
     Dates: start: 20180412, end: 20180412
  5. INFLECTRA [Suspect]
     Active Substance: INFLIXIMAB-DYYB
     Dosage: 400 MG, , EVERY 4 WEEKS
     Route: 065
     Dates: start: 20180510
  6. INFLECTRA [Suspect]
     Active Substance: INFLIXIMAB-DYYB
     Indication: CROHN^S DISEASE
     Dosage: 374 MG, CYCLIC, EVERY 0,2 6 WEEKS, THEN EVERY 8 WEEKS
     Route: 042
     Dates: start: 20170920
  7. FOLIC ACID. [Concomitant]
     Active Substance: FOLIC ACID
     Dosage: UNK
  8. METHOTREXATE. [Concomitant]
     Active Substance: METHOTREXATE
     Dosage: UNK
  9. INFLECTRA [Suspect]
     Active Substance: INFLIXIMAB-DYYB
     Dosage: 400 MG, , EVERY 4 WEEKS
     Route: 065
     Dates: start: 20180830

REACTIONS (15)
  - Abdominal pain [Recovering/Resolving]
  - Small intestinal obstruction [Recovered/Resolved]
  - C-reactive protein decreased [Unknown]
  - Product use issue [Unknown]
  - Drug level below therapeutic [Unknown]
  - Disease recurrence [Unknown]
  - Blood pressure fluctuation [Unknown]
  - Small intestinal obstruction [Unknown]
  - Anastomotic ulcer [Unknown]
  - Sepsis [Recovered/Resolved]
  - Body temperature increased [Unknown]
  - White blood cell count increased [Unknown]
  - Weight increased [Not Recovered/Not Resolved]
  - Abdominal distension [Unknown]
  - Drug specific antibody present [Unknown]

NARRATIVE: CASE EVENT DATE: 2017
